FAERS Safety Report 17398951 (Version 1)
Quarter: 2020Q1

REPORT INFORMATION
  Report Type: Spontaneous
  Country: US (occurrence: US)
  Receive Date: 20200210
  Receipt Date: 20200210
  Transmission Date: 20200409
  Serious: No
  Sender: FDA-Public Use
  Company Number: US-009507513-2002USA003486

PATIENT
  Age: 15 Year
  Sex: Female

DRUGS (6)
  1. ADVIL [Concomitant]
     Active Substance: IBUPROFEN
  2. PRAZOSIN. [Concomitant]
     Active Substance: PRAZOSIN
  3. NEXPLANON [Suspect]
     Active Substance: ETONOGESTREL
     Indication: CONTRACEPTION
     Dosage: LEFT/IMPLANT
     Route: 059
     Dates: start: 20180828
  4. TYLENOL [Concomitant]
     Active Substance: ACETAMINOPHEN
  5. TRILEPTAL [Concomitant]
     Active Substance: OXCARBAZEPINE
  6. PROZAC [Concomitant]
     Active Substance: FLUOXETINE HYDROCHLORIDE

REACTIONS (7)
  - Abdominal pain upper [Not Recovered/Not Resolved]
  - Headache [Not Recovered/Not Resolved]
  - Weight increased [Not Recovered/Not Resolved]
  - Mood swings [Not Recovered/Not Resolved]
  - Menometrorrhagia [Not Recovered/Not Resolved]
  - Acne [Not Recovered/Not Resolved]
  - Amenorrhoea [Recovered/Resolved]

NARRATIVE: CASE EVENT DATE: 201808
